FAERS Safety Report 5002614-7 (Version None)
Quarter: 2006Q2

REPORT INFORMATION
  Report Type: 
  Country: None (occurrence: None)
  Receive Date: 20060510
  Receipt Date: 20060424
  Transmission Date: 20061013
  Serious: Yes (Life-Threatening, Hospitalization, Other)
  Sender: FDA-Public Use
  Company Number: DSA_27946_2006

PATIENT
  Age: 76 Year
  Sex: Female
  Weight: 40 kg

DRUGS (11)
  1. RENIVACE [Suspect]
     Indication: HYPERTENSION
     Dosage: 5 MG BID PO
     Route: 048
     Dates: end: 20060315
  2. MICARDIS [Suspect]
     Indication: HYPERTENSION
     Dosage: 40 MG BID PO
     Route: 048
     Dates: end: 20060315
  3. MAINROL [Suspect]
     Indication: HYPERTENSION
     Dosage: 5 MG BID PO
     Route: 048
     Dates: end: 20050315
  4. MERICUT [Suspect]
     Indication: ARTHRALGIA
     Dosage: 50 MG Q DAY RC
     Dates: end: 20060314
  5. LANDEL [Concomitant]
  6. AMARYL [Concomitant]
  7. CARDENALIN [Concomitant]
  8. LASIX /00032601/ [Concomitant]
  9. LUDIOMIL /00331902/ [Concomitant]
  10. NEUROTROPIN [Concomitant]
  11. BONALON /01220301/ [Concomitant]

REACTIONS (14)
  - BLOOD SODIUM DECREASED [None]
  - BRADYCARDIA [None]
  - CHEST DISCOMFORT [None]
  - CHOLELITHIASIS [None]
  - CONDITION AGGRAVATED [None]
  - HAEMODIALYSIS [None]
  - HEPATIC FUNCTION ABNORMAL [None]
  - HYPERKALAEMIA [None]
  - HYPOTENSION [None]
  - ISCHAEMIC HEPATITIS [None]
  - MULTIPLE DRUG OVERDOSE [None]
  - PROTEIN URINE PRESENT [None]
  - RENAL FAILURE CHRONIC [None]
  - URINE POTASSIUM ABNORMAL [None]
